FAERS Safety Report 23135786 (Version 1)
Quarter: 2023Q4

REPORT INFORMATION
  Report Type: Spontaneous
  Country: US (occurrence: US)
  Receive Date: 20231101
  Receipt Date: 20231101
  Transmission Date: 20240110
  Serious: No
  Sender: FDA-Public Use
  Company Number: US-JNJFOC-20231021786

PATIENT
  Sex: Female

DRUGS (1)
  1. ZYRTEC [Suspect]
     Active Substance: CETIRIZINE HYDROCHLORIDE
     Indication: Multiple allergies
     Dosage: ABOUT 3 DAYS
     Route: 065

REACTIONS (4)
  - Hypertension [Unknown]
  - Pruritus [Unknown]
  - Headache [Unknown]
  - Drug ineffective [Unknown]
